FAERS Safety Report 15284364 (Version 1)
Quarter: 2018Q3

REPORT INFORMATION
  Report Type: Spontaneous
  Country: US (occurrence: US)
  Receive Date: 20180801
  Receipt Date: 20180801
  Transmission Date: 20181010
  Serious: No
  Sender: FDA-Public Use
  Company Number: None

PATIENT
  Age: 49 Year
  Sex: Female
  Weight: 91.63 kg

DRUGS (7)
  1. SUPPLEMENTS [Concomitant]
     Active Substance: UNSPECIFIED INGREDIENT
  2. MULTI VITAMIN [Concomitant]
     Active Substance: VITAMINS
  3. VITAMIN C [Concomitant]
     Active Substance: ASCORBIC ACID
  4. VITAMIN B12 [Concomitant]
     Active Substance: CYANOCOBALAMIN
  5. VITAMIN D [Concomitant]
     Active Substance: CHOLECALCIFEROL
  6. MIRENA [Suspect]
     Active Substance: LEVONORGESTREL
     Dates: start: 20161010
  7. INHALER [Concomitant]
     Active Substance: UNSPECIFIED INGREDIENT

REACTIONS (10)
  - Anger [None]
  - Pruritus [None]
  - Weight increased [None]
  - Anxiety [None]
  - Thinking abnormal [None]
  - Abdominal distension [None]
  - Vision blurred [None]
  - Suicidal ideation [None]
  - Alopecia [None]
  - Depression [None]

NARRATIVE: CASE EVENT DATE: 20180101
